FAERS Safety Report 10255973 (Version 1)
Quarter: 2014Q2

REPORT INFORMATION
  Report Type: Spontaneous
  Country: US (occurrence: US)
  Receive Date: 20140624
  Receipt Date: 20140624
  Transmission Date: 20141212
  Serious: Yes (Other)
  Sender: FDA-Public Use
  Company Number: US-PFIZER INC-2014169618

PATIENT
  Age: 51 Year
  Sex: Female
  Weight: 113.38 kg

DRUGS (2)
  1. GABAPENTIN [Suspect]
     Indication: DIABETIC NEUROPATHY
     Dosage: 100 MG, 3X/DAY
     Route: 048
     Dates: start: 201401, end: 2014
  2. GABAPENTIN [Suspect]
     Dosage: 300 MG, 1X/DAY (3 CAPSULES OF 100MG ONCE AT NIGHT)
     Route: 048
     Dates: start: 2014, end: 201406

REACTIONS (14)
  - Intentional product misuse [Unknown]
  - Suicidal ideation [Unknown]
  - Depression [Unknown]
  - Hypoxia [Unknown]
  - Dyspnoea [Unknown]
  - Confusional state [Unknown]
  - Hypoaesthesia [Unknown]
  - Dizziness [Unknown]
  - Fatigue [Unknown]
  - Feeling abnormal [Unknown]
  - Memory impairment [Unknown]
  - Burning sensation [Unknown]
  - Blood glucose abnormal [Unknown]
  - Glycosylated haemoglobin increased [Unknown]
